FAERS Safety Report 4645197-3 (Version None)
Quarter: 2005Q2

REPORT INFORMATION
  Report Type: 
  Country: None (occurrence: None)
  Receive Date: 20050426
  Receipt Date: 20050414
  Transmission Date: 20051028
  Serious: Yes (Life-Threatening, Hospitalization, Other)
  Sender: FDA-Public Use
  Company Number: US-GLAXOSMITHKLINE-A0554256A

PATIENT
  Age: 15 Year
  Sex: Female
  Weight: 55.9 kg

DRUGS (2)
  1. LAMICTAL [Suspect]
     Indication: DRUG USE FOR UNKNOWN INDICATION
     Route: 048
     Dates: start: 20041201
  2. GABITRIL [Suspect]
     Indication: DRUG USE FOR UNKNOWN INDICATION
     Dosage: 6MG PER DAY
     Route: 048
     Dates: start: 20050414

REACTIONS (12)
  - BELLIGERENCE [None]
  - BULIMIA NERVOSA [None]
  - COMA [None]
  - DECREASED APPETITE [None]
  - DYSKINESIA [None]
  - HEPATOCELLULAR DAMAGE [None]
  - NIGHTMARE [None]
  - OVERDOSE [None]
  - SELF-INJURIOUS IDEATION [None]
  - SLEEP DISORDER [None]
  - STUPOR [None]
  - SUICIDE ATTEMPT [None]
